FAERS Safety Report 22177795 (Version 2)
Quarter: 2023Q2

REPORT INFORMATION
  Report Type: Spontaneous
  Country: BR (occurrence: BR)
  Receive Date: 20230405
  Receipt Date: 20230615
  Transmission Date: 20230722
  Serious: Yes (Hospitalization)
  Sender: FDA-Public Use
  Company Number: BR-PFIZER INC-202300121751

PATIENT
  Age: 14 Year
  Sex: Male
  Weight: 166 kg

DRUGS (2)
  1. GENOTROPIN [Suspect]
     Active Substance: SOMATROPIN
     Indication: Growth disorder
     Dosage: 1.7 MG, DAILY
     Dates: start: 202205
  2. ANASTROZOLE [Concomitant]
     Active Substance: ANASTROZOLE
     Indication: Bone disorder
     Dosage: 1 DF, ALTERNATE DAY
     Dates: start: 202205

REACTIONS (6)
  - Blood creatine phosphokinase increased [Recovered/Resolved]
  - Blood test abnormal [Recovered/Resolved]
  - Blood phosphorus increased [Recovered/Resolved]
  - Aspartate aminotransferase increased [Recovered/Resolved]
  - Alanine aminotransferase increased [Recovered/Resolved]
  - Proteinuria [Recovered/Resolved]

NARRATIVE: CASE EVENT DATE: 20230101
